FAERS Safety Report 6112082-X (Version None)
Quarter: 2009Q1

REPORT INFORMATION
  Report Type: 
  Country: None (occurrence: None)
  Receive Date: 20090311
  Receipt Date: 20090226
  Transmission Date: 20090719
  Serious: Yes (Other)
  Sender: FDA-Public Use
  Company Number: US-PFIZER INC-2009179502

PATIENT
  Sex: Male
  Weight: 81 kg

DRUGS (13)
  1. VIAGRA [Suspect]
     Indication: ERECTILE DYSFUNCTION
     Dosage: 100 MG, UNK
  2. WARFARIN [Suspect]
  3. AVAPRO [Concomitant]
     Indication: AMNESIA
     Dosage: 150 MG, 1X/DAY
  4. SOTALOL [Concomitant]
     Indication: ATRIAL FIBRILLATION
     Dosage: 80 MG, 1X/DAY
  5. ACETYLSALICYLIC ACID [Concomitant]
     Dosage: UNK
  6. ALPRAZOLAM [Concomitant]
     Dosage: UNK
  7. SIMVASTATIN [Concomitant]
     Dosage: 20 MG, 1X/DAY
  8. SAW PALMETTO [Concomitant]
     Dosage: UNK
  9. LEVOTHYROXINE SODIUM [Concomitant]
     Dosage: 0.1 MG, 1X/DAY
  10. GLIPIZIDE [Concomitant]
     Dosage: 2.5 MG, 1X/DAY
  11. AMBIEN [Concomitant]
     Dosage: UNK
  12. GLUCOSAMINE [Concomitant]
     Dosage: UNK
  13. ALL OTHER THERAPEUTIC PRODUCTS [Concomitant]
     Dosage: UNK

REACTIONS (2)
  - ERECTILE DYSFUNCTION [None]
  - HAEMORRHAGE URINARY TRACT [None]
